FAERS Safety Report 6348942-4 (Version None)
Quarter: 2009Q3

REPORT INFORMATION
  Report Type: 
  Country: None (occurrence: None)
  Receive Date: 20090911
  Receipt Date: 20090826
  Transmission Date: 20100115
  Serious: Yes (Other)
  Sender: FDA-Public Use
  Company Number: US-BAYER-200913953BCC

PATIENT
  Age: 67 Year
  Sex: Female
  Weight: 91 kg

DRUGS (5)
  1. ALEVE (CAPLET) [Suspect]
     Indication: FIBROMYALGIA
     Dosage: UNIT DOSE: 220 MG
     Route: 048
     Dates: end: 20090824
  2. METFORMIN HCL [Concomitant]
     Route: 065
  3. ACTOS [Concomitant]
     Route: 065
  4. AMARYL [Concomitant]
     Route: 065
  5. RAMIPRIL [Concomitant]
     Route: 065

REACTIONS (1)
  - TREMOR [None]
